FAERS Safety Report 9995459 (Version 1)
Quarter: 2014Q1

REPORT INFORMATION
  Report Type: Spontaneous
  Country: US (occurrence: None)
  Receive Date: 20140304
  Receipt Date: 20140304
  Transmission Date: 20141002
  Serious: Yes (Hospitalization, Other)
  Sender: FDA-Public Use
  Company Number: RB-55204-2013

PATIENT
  Sex: 0

DRUGS (3)
  1. SUBOXONE [Suspect]
     Indication: DRUG DEPENDENCE
     Dosage: 8 MG, DOSING REGIMIN UKNOWN TRANSPLACENTAL
     Route: 064
  2. NICOTINE [Suspect]
     Indication: PRODUCT USED FOR UNKNOWN INDICATION
     Dosage: DETAILS NOT PROVIDED TRANSPLACENTAL
     Route: 064
  3. BUPRENORPHINE [Suspect]
     Indication: DRUG DEPENDENCE

REACTIONS (2)
  - Foetal exposure during pregnancy [None]
  - Drug withdrawal syndrome neonatal [None]
